FAERS Safety Report 4442401-1 (Version None)
Quarter: 2004Q3

REPORT INFORMATION
  Report Type: 
  Country: None (occurrence: None)
  Receive Date: 20040903
  Receipt Date: 20040506
  Transmission Date: 20050211
  Serious: Yes (Other)
  Sender: FDA-Public Use
  Company Number: 2004UW09472

PATIENT
  Age: 60 Year
  Sex: Female
  Weight: 62.1428 kg

DRUGS (6)
  1. CRESTOR [Suspect]
     Indication: BLOOD CHOLESTEROL INCREASED
     Dosage: 10 MG PO
     Route: 048
     Dates: start: 20040101
  2. PREVACID [Concomitant]
  3. LOTREL [Concomitant]
  4. WELLBUTRIN [Concomitant]
  5. PREMPRO [Concomitant]
  6. CALCIUM [Concomitant]

REACTIONS (1)
  - HIGH DENSITY LIPOPROTEIN DECREASED [None]
